FAERS Safety Report 8058609-2 (Version None)
Quarter: 2012Q1

REPORT INFORMATION
  Report Type: 
  Country: None (occurrence: None)
  Receive Date: 20120120
  Receipt Date: 20120112
  Transmission Date: 20120608
  Serious: Yes (Hospitalization, Other)
  Sender: FDA-Public Use
  Company Number: JP-JNJFOC-20110904431

PATIENT
  Sex: Male
  Weight: 60 kg

DRUGS (27)
  1. VELCADE [Suspect]
     Route: 042
     Dates: start: 20111220, end: 20111227
  2. VELCADE [Suspect]
     Route: 042
     Dates: start: 20110921, end: 20111012
  3. BASEN [Concomitant]
     Indication: DIABETES MELLITUS
     Route: 048
  4. LIPITOR [Concomitant]
     Indication: HYPERLIPIDAEMIA
     Route: 048
  5. LANSOPRAZOLE [Concomitant]
     Indication: GASTROOESOPHAGEAL REFLUX DISEASE
     Route: 048
  6. ASPIRIN [Concomitant]
     Indication: CORONARY ARTERY DISEASE
     Route: 048
     Dates: start: 20111006
  7. MAGNESIUM SULFATE [Concomitant]
     Indication: CONSTIPATION
     Route: 048
     Dates: start: 20110421, end: 20110722
  8. VELCADE [Suspect]
     Route: 042
     Dates: start: 20111116, end: 20111213
  9. VELCADE [Suspect]
     Route: 042
     Dates: start: 20110427, end: 20110907
  10. VELCADE [Suspect]
     Route: 042
     Dates: start: 20110801
  11. AMARYL [Concomitant]
     Indication: DIABETES MELLITUS
     Route: 048
  12. VANCOMYCIN HYDROCHLORIDE [Concomitant]
     Route: 048
     Dates: start: 20110728, end: 20110803
  13. DEXAMETHASONE TAB [Concomitant]
     Route: 048
     Dates: start: 20110706, end: 20111026
  14. VELCADE [Suspect]
     Indication: MULTIPLE MYELOMA
     Route: 042
     Dates: start: 20111019, end: 20111109
  15. CARVEDILOL [Concomitant]
     Indication: CARDIAC FAILURE CHRONIC
     Route: 048
  16. LASIX [Concomitant]
     Indication: CARDIAC FAILURE CHRONIC
     Route: 048
     Dates: start: 20110915
  17. METHYCOBAL [Concomitant]
     Indication: NEUROPATHY PERIPHERAL
     Route: 048
     Dates: start: 20110427
  18. VANCOMYCIN HYDROCHLORIDE [Concomitant]
     Indication: PSEUDOMEMBRANOUS COLITIS
     Route: 048
     Dates: start: 20110629, end: 20110706
  19. LOPERAMIDE HCL [Suspect]
     Indication: DIARRHOEA
     Route: 048
     Dates: start: 20110714, end: 20111201
  20. ISOSORBIDE DINITRATE [Concomitant]
     Indication: ANGINA PECTORIS
     Route: 062
  21. ADALAT [Concomitant]
     Indication: HYPERTENSION
     Route: 048
  22. VALTREX [Concomitant]
     Indication: HERPES ZOSTER
     Route: 048
     Dates: start: 20110427
  23. TRIMETHOPRIM [Concomitant]
     Indication: PNEUMOCYSTIS JIROVECI PNEUMONIA
     Route: 048
     Dates: start: 20110317
  24. LASIX [Concomitant]
     Route: 048
     Dates: end: 20110914
  25. SLOW-K [Concomitant]
     Indication: HYPONATRAEMIA
     Route: 048
     Dates: start: 20110809, end: 20111123
  26. DEXAMETHASONE TAB [Concomitant]
     Indication: MULTIPLE MYELOMA
     Route: 048
     Dates: start: 20110412, end: 20110418
  27. DEXAMETHASONE TAB [Concomitant]
     Route: 048
     Dates: start: 20110427, end: 20110701

REACTIONS (3)
  - DIARRHOEA [None]
  - DRUG INEFFECTIVE [None]
  - HYPOKALAEMIA [None]
